FAERS Safety Report 16963707 (Version 1)
Quarter: 2019Q4

REPORT INFORMATION
  Report Type: Spontaneous
  Country: DE (occurrence: DE)
  Receive Date: 20191025
  Receipt Date: 20191025
  Transmission Date: 20200122
  Serious: Yes (Other)
  Sender: FDA-Public Use
  Company Number: DE-US-PROVELL PHARMACEUTICALS LLC-E2B_90071556

PATIENT
  Age: 52 Year
  Sex: Female

DRUGS (3)
  1. EUTHYROX [Suspect]
     Active Substance: LEVOTHYROXINE SODIUM
     Dosage: DOSE INCREASED
  2. OMEPRAZOLE. [Concomitant]
     Active Substance: OMEPRAZOLE
     Indication: PRODUCT USED FOR UNKNOWN INDICATION
  3. EUTHYROX [Suspect]
     Active Substance: LEVOTHYROXINE SODIUM
     Indication: PRODUCT USED FOR UNKNOWN INDICATION

REACTIONS (12)
  - Short-bowel syndrome [Unknown]
  - Intestinal resection [Unknown]
  - Fatigue [Unknown]
  - Therapeutic response decreased [Unknown]
  - Stoma creation [Unknown]
  - Cardiac disorder [Unknown]
  - Dyspnoea [Unknown]
  - Malabsorption [Unknown]
  - Blood thyroid stimulating hormone increased [Unknown]
  - Weight decreased [Unknown]
  - Gastric stenosis [Unknown]
  - Cardiovascular disorder [Unknown]

NARRATIVE: CASE EVENT DATE: 2019
